FAERS Safety Report 7071883-4 (Version None)
Quarter: 2010Q4

REPORT INFORMATION
  Report Type: 
  Country: None (occurrence: None)
  Receive Date: 20101029
  Receipt Date: 20091030
  Transmission Date: 20110411
  Serious: No
  Sender: FDA-Public Use
  Company Number: A0814206A

PATIENT
  Age: 71 Year
  Sex: Male

DRUGS (9)
  1. ADVAIR DISKUS 100/50 [Suspect]
     Dosage: 1PUFF TWICE PER DAY
     Route: 055
     Dates: start: 20091026
  2. UNKNOWN MEDICATION [Concomitant]
  3. ASPIRIN [Concomitant]
  4. CALCIUM PLUS D [Concomitant]
  5. VITAMIN D [Concomitant]
  6. FOLIC ACID [Concomitant]
  7. CITALOPRAM HYDROBROMIDE [Concomitant]
  8. RANITIDINE [Concomitant]
  9. SIMVASTATIN [Concomitant]

REACTIONS (3)
  - HEADACHE [None]
  - NASAL CONGESTION [None]
  - SWOLLEN TONGUE [None]
